FAERS Safety Report 8233318-5 (Version None)
Quarter: 2012Q1

REPORT INFORMATION
  Report Type: 
  Country: None (occurrence: None)
  Receive Date: 20120323
  Receipt Date: 20120323
  Transmission Date: 20120608
  Serious: Yes (Hospitalization)
  Sender: FDA-Public Use
  Company Number: None

PATIENT
  Age: 68 Year
  Sex: Male
  Weight: 63.2 kg

DRUGS (2)
  1. ASPIRIN [Suspect]
     Dosage: 81 MG EVERY DAY PO
     Route: 048
     Dates: start: 20120215, end: 20120303
  2. CLOPIDOGREL [Suspect]
     Dosage: 75 MG EVERY DAY PO
     Route: 048
     Dates: start: 20120201, end: 20120303

REACTIONS (1)
  - GASTRIC HAEMORRHAGE [None]
